FAERS Safety Report 24771173 (Version 1)
Quarter: 2024Q4

REPORT INFORMATION
  Report Type: Spontaneous
  Country: US (occurrence: US)
  Receive Date: 20241224
  Receipt Date: 20241224
  Transmission Date: 20250115
  Serious: Yes (Other)
  Sender: BAXTER
  Company Number: US-BAXTER-2024BAX029660

PATIENT
  Sex: Female
  Weight: 70.2 kg

DRUGS (5)
  1. CYCLOPHOSPHAMIDE [Suspect]
     Active Substance: CYCLOPHOSPHAMIDE
     Indication: Acute lymphocytic leukaemia
     Dosage: 3132 MG, AT COURSE 5, TOTAL DOSE, CYCLE 5, AS A PART OF ARM2A, DOSE ADJUSTED HYPER-CVAD
     Route: 065
     Dates: start: 20240905, end: 20240908
  2. VINCRISTINE SULFATE [Suspect]
     Active Substance: VINCRISTINE SULFATE
     Indication: Acute lymphocytic leukaemia
     Dosage: 2 MG (COURSE 5, TOTAL DOSE), CYCLE 5, AS A PART OF ARM2A, DOSE ADJUSTED HYPER-CVAD
     Route: 065
     Dates: start: 20240905, end: 20240905
  3. DEXAMETHASONE [Suspect]
     Active Substance: DEXAMETHASONE
     Indication: Acute lymphocytic leukaemia
     Dosage: 320 MG, AT COURSE 5, TOTAL DOSE, CYCLE 5, AS A PART OF ARM2A, DOSE ADJUSTED HYPER-CVAD
     Route: 065
     Dates: start: 20240905, end: 20240908
  4. BLINATUMOMAB [Suspect]
     Active Substance: BLINATUMOMAB
     Indication: Acute lymphocytic leukaemia
     Dosage: UNK, CYCLE 5, AS A PART OF ARM2A, DOSE ADJUSTED HYPER-CVAD
     Route: 065
     Dates: start: 20240905
  5. ADRIAMYCIN [Suspect]
     Active Substance: DOXORUBICIN HYDROCHLORIDE
     Indication: Acute lymphocytic leukaemia
     Dosage: UNK, CYCLE 5, AS A PART OF ARM2A, DOSE ADJUSTED HYPER-CVAD
     Route: 065
     Dates: start: 20240905

REACTIONS (1)
  - Alanine aminotransferase increased [Recovering/Resolving]

NARRATIVE: CASE EVENT DATE: 20240906
